FAERS Safety Report 10066731 (Version 3)
Quarter: 2014Q2

REPORT INFORMATION
  Report Type: Report from Study
  Country: US (occurrence: US)
  Receive Date: 20140408
  Receipt Date: 20140424
  Transmission Date: 20141212
  Serious: Yes (Hospitalization, Other)
  Sender: FDA-Public Use
  Company Number: US-TMC-CABO 14004064

PATIENT
  Age: 55 Year
  Sex: Male
  Weight: 106 kg

DRUGS (20)
  1. CABOZANTINIB [Suspect]
     Indication: MALIGNANT MELANOMA
     Dosage: 60 MG, QD
     Route: 048
     Dates: start: 20140207, end: 20140323
  2. CABOZANTINIB [Suspect]
     Dosage: 40 MG, QD
     Route: 048
     Dates: start: 20140409
  3. LORAZEPAM [Concomitant]
  4. ONDANSETRON [Concomitant]
  5. OXYCODONE [Concomitant]
  6. GABAPENTIN [Concomitant]
  7. DRONABINOL [Concomitant]
  8. SERTRALINE [Concomitant]
  9. SENNA [Concomitant]
  10. FENTANYL [Concomitant]
  11. FINASTERIDE [Concomitant]
  12. TAMSULOSIN [Concomitant]
  13. DIAZEPAM [Concomitant]
  14. POLYETHYLENE GLYCOL [Concomitant]
  15. DEXAMETHASONE [Concomitant]
  16. DACARBAZINE [Concomitant]
  17. REGLAN [Concomitant]
  18. OMEPRAZOLE [Concomitant]
  19. MAGNESIUM [Concomitant]
  20. DOCUSATE [Concomitant]

REACTIONS (13)
  - Pulmonary embolism [Unknown]
  - Thrombosis in device [Unknown]
  - Pleural effusion [Recovering/Resolving]
  - Dehydration [Unknown]
  - Food craving [Unknown]
  - Hiccups [Recovering/Resolving]
  - Hypophagia [Unknown]
  - Odynophagia [Unknown]
  - Neck pain [Not Recovered/Not Resolved]
  - Asthenia [Unknown]
  - Stomatitis [Not Recovered/Not Resolved]
  - Nausea [Unknown]
  - Off label use [Unknown]
